FAERS Safety Report 5465191-2 (Version None)
Quarter: 2007Q3

REPORT INFORMATION
  Report Type: 
  Country: None (occurrence: None)
  Receive Date: 20070924
  Receipt Date: 20070918
  Transmission Date: 20080115
  Serious: Yes (Other)
  Sender: FDA-Public Use
  Company Number: GB-JNJFOC-20070904046

PATIENT
  Age: 21 Year
  Sex: Female

DRUGS (4)
  1. IBUPROFEN [Suspect]
     Indication: DRUG USE FOR UNKNOWN INDICATION
  2. AZITHROMYCIN [Interacting]
     Indication: ANTIINFLAMMATORY THERAPY
  3. COLOMYCIN [Interacting]
     Indication: PSEUDOMONAS INFECTION
     Dosage: 2DF
     Route: 042
  4. TOBRAMYCIN [Interacting]
     Indication: PSEUDOMONAS INFECTION
     Route: 042

REACTIONS (12)
  - ARTHROPATHY [None]
  - BLOOD CREATINE INCREASED [None]
  - BLOOD UREA INCREASED [None]
  - DRUG INTERACTION [None]
  - DYSPEPSIA [None]
  - INADEQUATE ANALGESIA [None]
  - INFLUENZA LIKE ILLNESS [None]
  - ORAL INTAKE REDUCED [None]
  - POLYARTHRITIS [None]
  - RENAL FAILURE ACUTE [None]
  - VOMITING [None]
  - WEIGHT DECREASED [None]
